FAERS Safety Report 4816527-4 (Version None)
Quarter: 2005Q4

REPORT INFORMATION
  Report Type: 
  Country: None (occurrence: None)
  Receive Date: 20051101
  Receipt Date: 20051024
  Transmission Date: 20060501
  Serious: Yes (Death, Other)
  Sender: FDA-Public Use
  Company Number: PHEH2005US11828

PATIENT
  Sex: Female

DRUGS (2)
  1. ESTROGEN [Suspect]
     Indication: HORMONE REPLACEMENT THERAPY
  2. MPA [Suspect]
     Indication: HORMONE REPLACEMENT THERAPY

REACTIONS (13)
  - ANXIETY [None]
  - BIOPSY BREAST ABNORMAL [None]
  - BREAST CANCER FEMALE [None]
  - BREAST RECONSTRUCTION [None]
  - CEREBROVASCULAR ACCIDENT [None]
  - DEATH [None]
  - EMBOLISM [None]
  - MALIGNANT BREAST LUMP REMOVAL [None]
  - MASTECTOMY [None]
  - MYOCARDIAL INFARCTION [None]
  - PAIN [None]
  - POLYTRAUMATISM [None]
  - SCAR [None]
